FAERS Safety Report 6416072-9 (Version None)
Quarter: 2009Q4

REPORT INFORMATION
  Report Type: 
  Country: None (occurrence: None)
  Receive Date: 20091027
  Receipt Date: 20091014
  Transmission Date: 20100525
  Serious: Yes (Death)
  Sender: FDA-Public Use
  Company Number: FR-ELI_LILLY_AND_COMPANY-FR200910003552

PATIENT
  Age: 36 Year
  Sex: Male
  Weight: 104 kg

DRUGS (6)
  1. ZYPREXA [Suspect]
     Indication: PSYCHOTIC DISORDER
     Dosage: 5 MG, DAILY (1/D)
     Route: 048
     Dates: start: 20060601
  2. ZYPREXA [Suspect]
     Dosage: 5 MG, 3/D
     Route: 048
  3. MYOLASTAN [Concomitant]
     Dosage: UNK, UNKNOWN
     Route: 065
  4. SERESTA [Concomitant]
     Dosage: UNK, UNKNOWN
     Route: 065
  5. THERALENE [Concomitant]
     Dosage: UNK, UNKNOWN
     Route: 065
  6. LARGACTIL [Concomitant]
     Dosage: UNK, UNKNOWN
     Route: 065

REACTIONS (1)
  - CARDIO-RESPIRATORY ARREST [None]
